FAERS Safety Report 13395207 (Version 1)
Quarter: 2017Q2

REPORT INFORMATION
  Report Type: Spontaneous
  Country: CH (occurrence: CH)
  Receive Date: 20170403
  Receipt Date: 20170403
  Transmission Date: 20170830
  Serious: Yes (Hospitalization)
  Sender: FDA-Public Use
  Company Number: CH-TEVA-753583ISR

PATIENT
  Age: 83 Year
  Sex: Female
  Weight: 53.6 kg

DRUGS (13)
  1. NEBILET TABLETTEN [Concomitant]
     Route: 048
  2. PREDNISON STREULI 5 MG TABLETTEN [Concomitant]
     Active Substance: PREDNISONE
     Route: 048
  3. ASPIRIN CARDIO 100 FILMTABLETTEN [Concomitant]
     Active Substance: ASPIRIN
     Route: 048
  4. NEXIUM 20 MUPS-TABLETTEN [Concomitant]
     Route: 048
  5. CO-AMOXI [Suspect]
     Active Substance: AMOXICILLIN\CLAVULANATE POTASSIUM
     Route: 041
     Dates: start: 20170207, end: 20170208
  6. MARCOUMAR TABLETTEN [Concomitant]
     Route: 048
  7. COSAAR PLUS FILMTABLETTEN [Concomitant]
     Route: 048
  8. AMLODIPIN-MEPHA 10 [Concomitant]
     Active Substance: AMLODIPINE MESYLATE
     Route: 048
  9. LESCOL KAPSELN [Concomitant]
     Route: 048
  10. COSAAR PLUS FORTE FILMTABLETTEN [Concomitant]
     Route: 048
  11. METFORMIN [Concomitant]
     Active Substance: METFORMIN HYDROCHLORIDE
     Route: 048
  12. ZYLORIC 100 TABLETTEN [Concomitant]
     Route: 048
  13. CITALOPRAM-MEPHA LACTAB [Concomitant]
     Active Substance: CITALOPRAM HYDROBROMIDE
     Route: 048

REACTIONS (2)
  - Crystalluria [Recovered/Resolved]
  - Acute kidney injury [Recovered/Resolved]

NARRATIVE: CASE EVENT DATE: 20170208
